FAERS Safety Report 5278414-X (Version None)
Quarter: 2007Q1

REPORT INFORMATION
  Report Type: 
  Country: None (occurrence: None)
  Receive Date: 20070328
  Receipt Date: 20070321
  Transmission Date: 20070707
  Serious: Yes (Hospitalization)
  Sender: FDA-Public Use
  Company Number: FR-BRISTOL-MYERS SQUIBB COMPANY-13726203

PATIENT
  Age: 67 Year
  Sex: Male

DRUGS (14)
  1. GLUCOPHAGE [Suspect]
     Indication: DIABETES MELLITUS NON-INSULIN-DEPENDENT
     Route: 048
  2. CORDARONE [Concomitant]
  3. LASIX [Concomitant]
  4. RIFATER [Concomitant]
     Indication: TUBERCULOSIS
  5. CORTANCYL [Concomitant]
  6. DESLORATADINE [Concomitant]
  7. ALLOPURINOL [Concomitant]
  8. STABLON [Concomitant]
  9. OMEPRAZOLE [Concomitant]
  10. TRAMADOL HCL [Concomitant]
  11. MYOLASTAN [Concomitant]
  12. ATACAND [Concomitant]
  13. CEFOTAXIME [Concomitant]
  14. LOVENOX [Concomitant]

REACTIONS (3)
  - LACTIC ACIDOSIS [None]
  - RENAL FAILURE ACUTE [None]
  - SHOCK [None]
